FAERS Safety Report 4556647-5 (Version None)
Quarter: 2005Q1

REPORT INFORMATION
  Report Type: 
  Country: None (occurrence: None)
  Receive Date: 20050114
  Receipt Date: 20050110
  Transmission Date: 20050727
  Serious: Yes (Death, Hospitalization)
  Sender: FDA-Public Use
  Company Number: 2005CG00085

PATIENT
  Age: 45 Year
  Sex: Female
  Weight: 65 kg

DRUGS (35)
  1. OMEPRAZOLE [Suspect]
  2. LARGACTIL [Suspect]
     Indication: NAUSEA
     Dates: start: 20040728, end: 20040730
  3. LARGACTIL [Suspect]
     Indication: VOMITING
     Dates: start: 20040728, end: 20040730
  4. LARGACTIL [Suspect]
     Indication: NAUSEA
     Dates: start: 20040101, end: 20040101
  5. LARGACTIL [Suspect]
     Indication: VOMITING
     Dates: start: 20040101, end: 20040101
  6. LARGACTIL [Suspect]
     Indication: NAUSEA
     Dates: start: 20040922, end: 20040924
  7. LARGACTIL [Suspect]
     Indication: VOMITING
     Dates: start: 20040922, end: 20040924
  8. VEPESID [Suspect]
     Indication: NON-SMALL CELL LUNG CANCER
     Dosage: 170 MG DAILY IV
     Route: 042
     Dates: start: 20040728, end: 20040730
  9. VEPESID [Suspect]
     Indication: NON-SMALL CELL LUNG CANCER
     Dosage: 170 MG DAILY IV
     Route: 042
     Dates: start: 20040101, end: 20040101
  10. VEPESID [Suspect]
     Indication: NON-SMALL CELL LUNG CANCER
     Dosage: 170 MG DAILY IV
     Route: 042
     Dates: start: 20040922, end: 20040924
  11. CISPLATIN [Suspect]
     Indication: NON-SMALL CELL LUNG CANCER
     Dosage: 50 MG DAILY IV
     Route: 042
     Dates: start: 20040728, end: 20040730
  12. CISPLATIN [Suspect]
     Indication: NON-SMALL CELL LUNG CANCER
     Dosage: 50 MG DAILY IV
     Route: 042
     Dates: start: 20040101, end: 20040101
  13. CISPLATIN [Suspect]
     Indication: NON-SMALL CELL LUNG CANCER
     Dosage: 50 MG DAILY IV
     Route: 042
     Dates: start: 20040922, end: 20040924
  14. LEXOMIL [Suspect]
     Dates: start: 20040728, end: 20041025
  15. ZOPHREN [Suspect]
     Indication: NAUSEA
     Dosage: 16 MG T1WK IV
     Route: 042
     Dates: start: 20040728, end: 20040730
  16. ZOPHREN [Suspect]
     Indication: VOMITING
     Dosage: 16 MG T1WK IV
     Route: 042
     Dates: start: 20040728, end: 20040730
  17. ZOPHREN [Suspect]
     Indication: NAUSEA
     Dosage: 16 MG T1WK IV
     Route: 042
     Dates: start: 20040101, end: 20040101
  18. ZOPHREN [Suspect]
     Indication: VOMITING
     Dosage: 16 MG T1WK IV
     Route: 042
     Dates: start: 20040101, end: 20040101
  19. ZOPHREN [Suspect]
     Indication: NAUSEA
     Dosage: 16 MG T1WK IV
     Route: 042
     Dates: start: 20040922, end: 20040924
  20. ZOPHREN [Suspect]
     Indication: VOMITING
     Dosage: 16 MG T1WK IV
     Route: 042
     Dates: start: 20040922, end: 20040924
  21. CALCIUM CARBONATE W/COLECALCIFEROL [Suspect]
     Dates: end: 20041025
  22. SOLUPRED [Suspect]
     Dates: end: 20040728
  23. SOLUPRED [Suspect]
     Dates: start: 20040730, end: 20040101
  24. SOLUPRED [Suspect]
     Dates: start: 20040101, end: 20040922
  25. SOLUPRED [Suspect]
     Dates: start: 20040924, end: 20041025
  26. ZOLPIDEM TARTRATE [Suspect]
  27. PRIMPERAN INJ [Suspect]
     Dates: start: 20040728, end: 20040730
  28. PRIMPERAN INJ [Suspect]
     Dates: start: 20040101, end: 20040101
  29. PRIMPERAN INJ [Suspect]
     Dates: start: 20040922, end: 20040924
  30. SOLU-MEDROL [Suspect]
     Dates: start: 20040728, end: 20040730
  31. SOLU-MEDROL [Suspect]
     Dates: start: 20040101, end: 20040101
  32. SOLU-MEDROL [Suspect]
     Dates: start: 20040922, end: 20040924
  33. DEROXAT [Suspect]
     Dates: start: 20040728, end: 20041025
  34. DURAGESIC [Suspect]
  35. ACTISKENAN [Suspect]

REACTIONS (11)
  - ALVEOLITIS [None]
  - ANAEMIA [None]
  - BRONCHOALVEOLAR LAVAGE ABNORMAL [None]
  - CHEST X-RAY ABNORMAL [None]
  - CREATININE RENAL CLEARANCE DECREASED [None]
  - DEPRESSED LEVEL OF CONSCIOUSNESS [None]
  - GENERAL PHYSICAL HEALTH DETERIORATION [None]
  - LEUKOCYTOSIS [None]
  - PNEUMONIA [None]
  - SEPTIC SHOCK [None]
  - VOMITING [None]
